FAERS Safety Report 5725708-7 (Version None)
Quarter: 2008Q2

REPORT INFORMATION
  Report Type: 
  Country: None (occurrence: None)
  Receive Date: 20080501
  Receipt Date: 20080422
  Transmission Date: 20081010
  Serious: Yes (Hospitalization)
  Sender: FDA-Public Use
  Company Number: DE-ABBOTT-08P-062-0448443-00

PATIENT
  Age: 66 Year
  Sex: Male
  Weight: 84 kg

DRUGS (7)
  1. HUMIRA [Suspect]
     Indication: RHEUMATOID ARTHRITIS
     Route: 058
     Dates: start: 20080117, end: 20080201
  2. GLUCOCORTICOIDS [Concomitant]
     Indication: RHEUMATOID ARTHRITIS
     Dosage: 5 MILLIGRAMS PER DAY
     Route: 048
  3. ANALGESICS [Concomitant]
     Indication: RHEUMATOID ARTHRITIS
  4. RAMIPRIL [Concomitant]
     Indication: HYPERTONIA
  5. BISOPROLOL FUMARATE [Concomitant]
     Indication: HYPERTONIA
  6. AMLODIPINE [Concomitant]
     Indication: HYPERTONIA
  7. OMEPRAZOLE [Concomitant]
     Indication: PROPHYLAXIS AGAINST GASTROINTESTINAL ULCER

REACTIONS (1)
  - TONSIL CANCER [None]
